FAERS Safety Report 5875297-1 (Version None)
Quarter: 2008Q3

REPORT INFORMATION
  Report Type: 
  Country: None (occurrence: None)
  Receive Date: 20080909
  Receipt Date: 20080904
  Transmission Date: 20090109
  Serious: Yes (Other)
  Sender: FDA-Public Use
  Company Number: JP-MERCK-0804USA01204

PATIENT
  Age: 30 Year
  Sex: Male

DRUGS (3)
  1. PROPECIA [Suspect]
     Route: 048
     Dates: start: 20071101
  2. HARNAL [Concomitant]
     Route: 048
  3. VALTREX [Concomitant]
     Indication: HERPES VIRUS INFECTION
     Route: 048

REACTIONS (2)
  - ALANINE AMINOTRANSFERASE INCREASED [None]
  - ASPARTATE AMINOTRANSFERASE INCREASED [None]
